FAERS Safety Report 7201089-7 (Version None)
Quarter: 2010Q4

REPORT INFORMATION
  Report Type: 
  Country: None (occurrence: None)
  Receive Date: 20101229
  Receipt Date: 20101217
  Transmission Date: 20110411
  Serious: No
  Sender: FDA-Public Use
  Company Number: US-BIOGENIDEC-2010BI038186

PATIENT
  Age: 48 Year
  Sex: Female

DRUGS (3)
  1. TYSABRI [Suspect]
     Indication: MULTIPLE SCLEROSIS
     Route: 042
     Dates: start: 20100902
  2. BENADRYL [Concomitant]
     Indication: RASH
     Dates: start: 20101008
  3. PREDNISONE [Concomitant]
     Indication: RASH

REACTIONS (2)
  - NASOPHARYNGITIS [None]
  - RASH [None]
